FAERS Safety Report 13465072 (Version 5)
Quarter: 2017Q4

REPORT INFORMATION
  Report Type: Report from Study
  Country: None (occurrence: US)
  Receive Date: 20170421
  Receipt Date: 20171204
  Transmission Date: 20180320
  Serious: Yes (Other)
  Sender: FDA-Public Use
  Company Number: US-ABBVIE-17K-163-1836337-00

PATIENT
  Age: 57 Year
  Sex: Male

DRUGS (9)
  1. FISH OIL [Concomitant]
     Active Substance: FISH OIL
     Indication: PRODUCT USED FOR UNKNOWN INDICATION
  2. HUMIRA [Suspect]
     Active Substance: ADALIMUMAB
     Indication: CROHN^S DISEASE
     Dosage: DAY 1
     Route: 058
     Dates: start: 201607, end: 201607
  3. MERCAPTOPURINE. [Concomitant]
     Active Substance: MERCAPTOPURINE
     Indication: PRODUCT USED FOR UNKNOWN INDICATION
     Dates: end: 20161201
  4. COLESTIPOL [Concomitant]
     Active Substance: COLESTIPOL
     Indication: BLOOD CHOLESTEROL INCREASED
  5. VITAMIN D WITH CALCIUM [Concomitant]
     Active Substance: CALCIUM\CHOLECALCIFEROL
     Indication: PRODUCT USED FOR UNKNOWN INDICATION
  6. HUMIRA [Suspect]
     Active Substance: ADALIMUMAB
     Dosage: TWO WEEKS LATER
     Route: 058
     Dates: start: 2016, end: 2016
  7. HUMIRA [Suspect]
     Active Substance: ADALIMUMAB
     Route: 058
     Dates: start: 201608, end: 201611
  8. HUMIRA [Suspect]
     Active Substance: ADALIMUMAB
     Route: 058
     Dates: start: 201612
  9. DAILY BODY RESORE PROBIOTIC [Concomitant]
     Indication: PRODUCT USED FOR UNKNOWN INDICATION

REACTIONS (30)
  - Dry skin [Not Recovered/Not Resolved]
  - Scab [Unknown]
  - Oropharyngeal pain [Unknown]
  - Diarrhoea [Unknown]
  - Insomnia [Unknown]
  - Anxiety [Unknown]
  - Pyrexia [Unknown]
  - Basal cell carcinoma [Recovering/Resolving]
  - Muscle strain [Recovered/Resolved]
  - Weight increased [Unknown]
  - Paraesthesia oral [Unknown]
  - Platelet count decreased [Unknown]
  - Haemorrhoidal haemorrhage [Recovered/Resolved]
  - Depressed mood [Unknown]
  - Nasopharyngitis [Recovered/Resolved]
  - Therapeutic response shortened [Recovering/Resolving]
  - Flatulence [Recovered/Resolved]
  - Road traffic accident [Unknown]
  - Diarrhoea [Not Recovered/Not Resolved]
  - Nasopharyngitis [Recovered/Resolved]
  - Rectal haemorrhage [Unknown]
  - Injection site pain [Unknown]
  - Diarrhoea [Unknown]
  - Dental implantation [Unknown]
  - Fatigue [Unknown]
  - Post procedural complication [Unknown]
  - Squamous cell carcinoma of skin [Recovered/Resolved]
  - Basal cell carcinoma [Recovered/Resolved with Sequelae]
  - Pruritus [Unknown]
  - Abdominal pain upper [Unknown]

NARRATIVE: CASE EVENT DATE: 201611
